FAERS Safety Report 10166427 (Version 2)
Quarter: 2014Q3

REPORT INFORMATION
  Report Type: Spontaneous
  Country: US (occurrence: US)
  Receive Date: 20140512
  Receipt Date: 20140710
  Transmission Date: 20150326
  Serious: Yes (Hospitalization)
  Sender: FDA-Public Use
  Company Number: US-BAYER-2014-067248

PATIENT
  Age: 23 Year
  Sex: Female

DRUGS (7)
  1. PROZAC [Concomitant]
     Active Substance: FLUOXETINE HYDROCHLORIDE
     Dosage: 40 MG, DAILY
     Route: 048
  2. SEROQUEL [Concomitant]
     Active Substance: QUETIAPINE FUMARATE
     Dosage: 50 MG, HS
     Route: 048
  3. MAGNESIUM CITRATE. [Concomitant]
     Active Substance: MAGNESIUM CITRATE
     Dosage: UNK, PRN
  4. BEYAZ [Suspect]
     Active Substance: DROSPIRENONE\ETHINYL ESTRADIOL\LEVOMEFOLATE CALCIUM
     Dosage: UNK
     Dates: start: 20111024, end: 20120602
  5. IRON [Concomitant]
     Active Substance: IRON
     Dosage: 160 MG, BID DAILY
  6. MIRALAX [Concomitant]
     Active Substance: POLYETHYLENE GLYCOL 3350
     Dosage: UNK, TID
  7. DULCOLAX [BISACODYL] [Concomitant]
     Dosage: 10 MG, TID, PRN
     Route: 048

REACTIONS (6)
  - Pulmonary embolism [Recovering/Resolving]
  - Fear of death [None]
  - Nervousness [None]
  - Injury [Recovering/Resolving]
  - Emotional distress [None]
  - Depression [None]

NARRATIVE: CASE EVENT DATE: 20120602
